FAERS Safety Report 5776753-7 (Version None)
Quarter: 2008Q2

REPORT INFORMATION
  Report Type: 
  Country: None (occurrence: None)
  Receive Date: 20080618
  Receipt Date: 20080318
  Transmission Date: 20081010
  Serious: No
  Sender: FDA-Public Use
  Company Number: US-ASTRAZENECA-2008UW01959

PATIENT
  Age: 53 Year
  Sex: Male
  Weight: 113.6 kg

DRUGS (3)
  1. SYMBICORT [Suspect]
     Indication: ASTHMA
     Dosage: 80/4.5 UG
     Route: 055
     Dates: start: 20080116, end: 20080122
  2. SPIRIVA [Concomitant]
     Indication: CHRONIC OBSTRUCTIVE PULMONARY DISEASE
     Route: 055
     Dates: start: 20080211
  3. ALBUTEROL [Concomitant]

REACTIONS (4)
  - DEHYDRATION [None]
  - DRY MOUTH [None]
  - FEELING JITTERY [None]
  - RASH PRURITIC [None]
